FAERS Safety Report 8630525 (Version 24)
Quarter: 2015Q3

REPORT INFORMATION
  Report Type: Spontaneous
  Country: CA (occurrence: CA)
  Receive Date: 20120622
  Receipt Date: 20150916
  Transmission Date: 20151125
  Serious: Yes (Hospitalization, Other)
  Sender: FDA-Public Use
  Company Number: CA-ROCHE-1080796

PATIENT
  Age: 39 Year
  Sex: Female

DRUGS (20)
  1. XOLAIR [Suspect]
     Active Substance: OMALIZUMAB
     Route: 058
     Dates: start: 20131017
  2. XOLAIR [Suspect]
     Active Substance: OMALIZUMAB
     Route: 058
     Dates: start: 20140212
  3. AMOXICILLIN. [Concomitant]
     Active Substance: AMOXICILLIN
     Route: 065
     Dates: start: 20130106
  4. XOLAIR [Suspect]
     Active Substance: OMALIZUMAB
     Route: 058
     Dates: start: 20130319
  5. XOLAIR [Suspect]
     Active Substance: OMALIZUMAB
     Route: 058
     Dates: start: 20140102
  6. XOLAIR [Suspect]
     Active Substance: OMALIZUMAB
     Route: 058
     Dates: start: 20140228
  7. PULMICORT TURBUHALER [Concomitant]
     Active Substance: BUDESONIDE
  8. XOLAIR [Suspect]
     Active Substance: OMALIZUMAB
     Indication: ASTHMA
     Route: 058
     Dates: start: 20120618
  9. XOLAIR [Suspect]
     Active Substance: OMALIZUMAB
     Route: 058
     Dates: start: 20140606
  10. XOLAIR [Suspect]
     Active Substance: OMALIZUMAB
     Route: 058
     Dates: start: 20150310
  11. XOLAIR [Suspect]
     Active Substance: OMALIZUMAB
     Route: 058
     Dates: start: 20130305
  12. VENTOLIN [Concomitant]
     Active Substance: ALBUTEROL SULFATE
  13. XOLAIR [Suspect]
     Active Substance: OMALIZUMAB
     Route: 058
     Dates: start: 2012
  14. SPIRIVA [Concomitant]
     Active Substance: TIOTROPIUM BROMIDE MONOHYDRATE
  15. PREDNISONE. [Concomitant]
     Active Substance: PREDNISONE
  16. IPRATROPIUM + SALBUTAMOL [Concomitant]
  17. XOLAIR [Suspect]
     Active Substance: OMALIZUMAB
     Route: 058
     Dates: start: 20131001
  18. XOLAIR [Suspect]
     Active Substance: OMALIZUMAB
     Route: 058
     Dates: start: 20140115
  19. XOLAIR [Suspect]
     Active Substance: OMALIZUMAB
     Route: 058
     Dates: start: 20130904
  20. ADVAIR HFA [Concomitant]
     Active Substance: FLUTICASONE PROPIONATE\SALMETEROL XINAFOATE
     Route: 065

REACTIONS (19)
  - Fatigue [Unknown]
  - Lung infection [Unknown]
  - Mental disorder [Unknown]
  - Vomiting [Unknown]
  - Cough [Recovered/Resolved]
  - Gait disturbance [Unknown]
  - Body temperature decreased [Not Recovered/Not Resolved]
  - Forced expiratory flow decreased [Unknown]
  - Dizziness [Recovering/Resolving]
  - Malaise [Not Recovered/Not Resolved]
  - Nausea [Unknown]
  - Nasopharyngitis [Unknown]
  - Aphonia [Recovering/Resolving]
  - Respiratory disorder [Unknown]
  - Middle insomnia [Unknown]
  - Nasal congestion [Unknown]
  - Rhinorrhoea [Unknown]
  - Asthma [Unknown]
  - Wheezing [Unknown]

NARRATIVE: CASE EVENT DATE: 20120618
